FAERS Safety Report 20053267 (Version 4)
Quarter: 2023Q2

REPORT INFORMATION
  Report Type: Spontaneous
  Country: US (occurrence: US)
  Receive Date: 20211110
  Receipt Date: 20230419
  Transmission Date: 20230721
  Serious: Yes (Other)
  Sender: FDA-Public Use
  Company Number: US-PFIZER INC-2021608489

PATIENT
  Age: 38 Year
  Sex: Female

DRUGS (2)
  1. XELJANZ XR [Suspect]
     Active Substance: TOFACITINIB CITRATE
     Indication: Rheumatoid arthritis
     Dosage: UNK
     Dates: start: 2018
  2. AIMOVIG [Suspect]
     Active Substance: ERENUMAB-AOOE
     Indication: Migraine
     Dosage: UNK

REACTIONS (15)
  - Gastric ulcer [Unknown]
  - Rheumatoid arthritis [Unknown]
  - Somnolence [Unknown]
  - Fatigue [Unknown]
  - Inflammation [Unknown]
  - Stress [Unknown]
  - Migraine [Unknown]
  - Gastrointestinal disorder [Unknown]
  - Oral fungal infection [Recovering/Resolving]
  - COVID-19 [Unknown]
  - Condition aggravated [Unknown]
  - Tenosynovitis stenosans [Unknown]
  - Peripheral venous disease [Unknown]
  - Arthropathy [Unknown]
  - Illness [Unknown]

NARRATIVE: CASE EVENT DATE: 20220101
